FAERS Safety Report 5811466-4 (Version None)
Quarter: 2008Q3

REPORT INFORMATION
  Report Type: 
  Country: None (occurrence: None)
  Receive Date: 20080714
  Receipt Date: 20080714
  Transmission Date: 20090109
  Serious: No
  Sender: FDA-Public Use
  Company Number: None

PATIENT
  Sex: Female

DRUGS (4)
  1. BUPROPION XL 300MG [Suspect]
     Indication: DEPRESSION
     Dosage: 300MG QD PO
     Route: 048
     Dates: start: 20080401, end: 20080501
  2. PAXIL CR [Concomitant]
  3. LEXAPRO [Concomitant]
  4. WELLBUTRIN XL [Concomitant]

REACTIONS (2)
  - DIZZINESS [None]
  - TINNITUS [None]
